FAERS Safety Report 17362586 (Version 1)
Quarter: 2020Q1

REPORT INFORMATION
  Report Type: Spontaneous
  Country: US (occurrence: US)
  Receive Date: 20200202
  Receipt Date: 20200202
  Transmission Date: 20200409
  Serious: Yes (Disabling)
  Sender: FDA-Public Use
  Company Number: None

PATIENT
  Age: 56 Year
  Sex: Female
  Weight: 67.5 kg

DRUGS (6)
  1. SMZ/TMP DS 800-160 TAB AMN GENERIC FOR BACTRIM DS 800-160 TAB [Suspect]
     Active Substance: SULFAMETHOXAZOLE\TRIMETHOPRIM
     Indication: STAPHYLOCOCCAL INFECTION
     Dosage: ?          OTHER STRENGTH:TAB;QUANTITY:20 TABLET(S);?
     Route: 048
     Dates: start: 20200123, end: 20200127
  2. JANUVIA [Concomitant]
     Active Substance: SITAGLIPTIN PHOSPHATE
  3. METFORMIN [Concomitant]
     Active Substance: METFORMIN HYDROCHLORIDE
  4. LISINOPRIL. [Concomitant]
     Active Substance: LISINOPRIL
  5. GLYBURDIE [Concomitant]
  6. IRON [Concomitant]
     Active Substance: IRON

REACTIONS (5)
  - Therapy cessation [None]
  - Hypoaesthesia [None]
  - Skin burning sensation [None]
  - Pain in extremity [None]
  - Blood glucose decreased [None]

NARRATIVE: CASE EVENT DATE: 20200124
